FAERS Safety Report 22530456 (Version 1)
Quarter: 2023Q2

REPORT INFORMATION
  Report Type: Spontaneous
  Country: US (occurrence: None)
  Receive Date: 20230606
  Receipt Date: 20230606
  Transmission Date: 20230722
  Serious: Yes (Disabling, Other)
  Sender: FDA-Public Use
  Company Number: None

PATIENT
  Age: 50 Year
  Sex: Female
  Weight: 81 kg

DRUGS (2)
  1. PRALUENT [Suspect]
     Active Substance: ALIROCUMAB
     Indication: Type IIa hyperlipidaemia
     Dosage: OTHER FREQUENCY : EVERY TWO WEEKS 75;?
     Route: 058
  2. MULTI FISH OIL CALCIUM [Concomitant]

REACTIONS (14)
  - Tachycardia [None]
  - Atrial fibrillation [None]
  - Arthralgia [None]
  - Spinal pain [None]
  - Myalgia [None]
  - Back pain [None]
  - Arthralgia [None]
  - Nausea [None]
  - Rash macular [None]
  - Rash [None]
  - Injection site reaction [None]
  - Pain [None]
  - Dysstasia [None]
  - Disability [None]

NARRATIVE: CASE EVENT DATE: 20230301
